FAERS Safety Report 9802523 (Version 3)
Quarter: 2014Q1

REPORT INFORMATION
  Report Type: Spontaneous
  Country: CA (occurrence: CA)
  Receive Date: 20140107
  Receipt Date: 20140113
  Transmission Date: 20141002
  Serious: Yes (Other)
  Sender: FDA-Public Use
  Company Number: CA-AMGEN-CANSP2013081058

PATIENT
  Age: 35 Year
  Sex: Female

DRUGS (3)
  1. ENBREL [Suspect]
     Indication: PSORIASIS
     Dosage: 50 MG, UNK
     Route: 065
     Dates: start: 20131008
  2. YASMIN [Concomitant]
     Dosage: UNK
  3. ZARAH [Concomitant]
     Dosage: UNK

REACTIONS (11)
  - Pneumonia [Recovering/Resolving]
  - Sinus disorder [Recovering/Resolving]
  - Influenza [Recovering/Resolving]
  - Lower respiratory tract infection [Recovering/Resolving]
  - Injection site reaction [Unknown]
  - Injection site erythema [Unknown]
  - Injection site bruising [Unknown]
  - Injection site induration [Unknown]
  - Vomiting [Recovered/Resolved]
  - Diarrhoea [Recovered/Resolved]
  - Nausea [Recovered/Resolved]
